FAERS Safety Report 8042849-2 (Version None)
Quarter: 2012Q1

REPORT INFORMATION
  Report Type: 
  Country: None (occurrence: None)
  Receive Date: 20120112
  Receipt Date: 20120109
  Transmission Date: 20120608
  Serious: No
  Sender: FDA-Public Use
  Company Number: US-PFIZER INC-2012006880

PATIENT
  Sex: Female
  Weight: 51.247 kg

DRUGS (3)
  1. PRISTIQ [Suspect]
     Indication: DEPRESSION
     Dosage: 50 MG, 1X/DAY
     Dates: start: 20110201
  2. CYMBALTA [Suspect]
     Indication: DEPRESSION
     Dosage: UNK
  3. TRAZODONE [Concomitant]
     Indication: SLEEP DISORDER
     Dosage: 50 MG, 1X/DAY

REACTIONS (5)
  - DRUG INEFFECTIVE [None]
  - CRYING [None]
  - CHEST DISCOMFORT [None]
  - ASTHENIA [None]
  - MALAISE [None]
